FAERS Safety Report 14943568 (Version 2)
Quarter: 2018Q2

REPORT INFORMATION
  Report Type: Spontaneous
  Country: DE (occurrence: DE)
  Receive Date: 20180528
  Receipt Date: 20180528
  Transmission Date: 20180711
  Serious: Yes (Death, Hospitalization, Other)
  Sender: FDA-Public Use
  Company Number: PHHY2018DE008428

PATIENT
  Age: 81 Year
  Sex: Female

DRUGS (5)
  1. AMIODARONE [Suspect]
     Active Substance: AMIODARONE
     Indication: ATRIAL FIBRILLATION
     Dosage: UNK
     Route: 065
  2. IMATINIB [Suspect]
     Active Substance: IMATINIB
     Indication: GASTROINTESTINAL STROMAL TUMOUR
     Dosage: 400 MG/DAY AS 1ST LINE ADJUVANT THERAPY
     Route: 065
  3. DIGOXIN. [Suspect]
     Active Substance: DIGOXIN
     Indication: ATRIAL FIBRILLATION
     Dosage: UNK
     Route: 065
  4. SUNITINIB [Suspect]
     Active Substance: SUNITINIB
     Indication: GASTROINTESTINAL STROMAL TUMOUR
     Dosage: UNK, 2ND LINE THERAPY
     Route: 065
  5. IMATINIB [Suspect]
     Active Substance: IMATINIB
     Indication: SYSTEMIC SCLERODERMA
     Dosage: 400 MG/DAY
     Route: 065

REACTIONS (11)
  - Metastases to liver [Fatal]
  - Metastases to peritoneum [Unknown]
  - Disease recurrence [Fatal]
  - Septic shock [Fatal]
  - Malignant neoplasm progression [Unknown]
  - Drug ineffective [Unknown]
  - Condition aggravated [Fatal]
  - Respiratory failure [Fatal]
  - Upper gastrointestinal haemorrhage [Recovered/Resolved]
  - Bradycardia [Unknown]
  - Shock [Fatal]
